FAERS Safety Report 4959018-2 (Version None)
Quarter: 2006Q1

REPORT INFORMATION
  Report Type: 
  Country: None (occurrence: None)
  Receive Date: 20060324
  Receipt Date: 20060323
  Transmission Date: 20060701
  Serious: Yes (Hospitalization)
  Sender: FDA-Public Use
  Company Number: A600270412/AK04838AE

PATIENT
  Age: 12 Year
  Sex: Male

DRUGS (1)
  1. PAREMYD [Suspect]
     Dates: start: 20051227, end: 20051228

REACTIONS (2)
  - PHARMACEUTICAL PRODUCT COMPLAINT [None]
  - SYNCOPE [None]
